FAERS Safety Report 12956645 (Version 1)
Quarter: 2016Q4

REPORT INFORMATION
  Report Type: Report from Study
  Country: JP (occurrence: JP)
  Receive Date: 20161118
  Receipt Date: 20161118
  Transmission Date: 20170207
  Serious: Yes (Death, Other)
  Sender: FDA-Public Use
  Company Number: JP-DSJP-DSJ-2016-131674

PATIENT

DRUGS (12)
  1. DENOTAS CHEWABLE COMBINATION TABLETS [Concomitant]
     Dosage: 2DF/DAY
     Route: 048
     Dates: start: 20160614, end: 20160730
  2. 5-FU                               /00098801/ [Concomitant]
     Active Substance: FLUOROURACIL
     Dosage: 670 MG, ONCE EVERY 1 WK
     Route: 042
     Dates: start: 20160616, end: 20160721
  3. VOLTAREN [Concomitant]
     Active Substance: DICLOFENAC SODIUM
     Dosage: 75MG/DAY
     Route: 048
     Dates: start: 20160614, end: 20160702
  4. EDOXABAN [Suspect]
     Active Substance: EDOXABAN TOSYLATE
     Indication: PULMONARY EMBOLISM
     Dosage: 30 MG, QD
     Route: 048
     Dates: start: 20160614, end: 20160617
  5. MAGNESIUM OXIDE. [Concomitant]
     Active Substance: MAGNESIUM OXIDE
     Dosage: 990MG/DAY
     Route: 048
     Dates: start: 20160609, end: 20160731
  6. OXINORM                            /00045603/ [Concomitant]
     Active Substance: OXYCODONE HYDROCHLORIDE
     Dosage: 5 MG, AS NEEDED
     Route: 048
     Dates: start: 20160613, end: 20160731
  7. NAIXAN                             /00256201/ [Concomitant]
     Active Substance: NAPROXEN
     Dosage: 300MG/DAY
     Route: 048
     Dates: start: 20160609, end: 20160613
  8. ISOVORIN                           /06682103/ [Concomitant]
     Active Substance: LEUCOVORIN CALCIUM
     Dosage: 300 MG, ONCE EVERY 1 WK
     Route: 042
     Dates: start: 20160616, end: 20160721
  9. REBAMIPIDE [Concomitant]
     Active Substance: REBAMIPIDE
     Dosage: 300MG/DAY
     Route: 048
     Dates: start: 20160614, end: 20160731
  10. RANMARK SUBCUTANEOUS INJECTION 120MG [Concomitant]
     Active Substance: DENOSUMAB
     Dosage: 120 MG, UNK
     Route: 058
     Dates: start: 20160614, end: 20160712
  11. LOXOPROFEN                         /00890702/ [Concomitant]
     Active Substance: LOXOPROFEN
     Dosage: 180MG/DAY
     Route: 048
     Dates: start: 20160703, end: 20160731
  12. EDOXABAN [Suspect]
     Active Substance: EDOXABAN TOSYLATE
     Indication: DEEP VEIN THROMBOSIS

REACTIONS (2)
  - Tumour haemorrhage [Not Recovered/Not Resolved]
  - Rectal cancer [Fatal]

NARRATIVE: CASE EVENT DATE: 20160616
